FAERS Safety Report 7923649 (Version 2)
Quarter: 2012Q4

REPORT INFORMATION
  Report Type: 
  Country: US (occurrence: US)
  Receive Date: 20110429
  Receipt Date: 20121009
  Transmission Date: 20130627
  Serious: No
  Sender: FDA-Public Use
  Company Number: US-ASTRAZENECA-2010SE40942

PATIENT
  Age: 38 Year
  Sex: Female
  Weight: 83.5 kg

DRUGS (4)
  1. RHINOCORT AQUA [Suspect]
     Route: 045
  2. SYMBICORT [Suspect]
     Route: 055
  3. ATACAND HCT [Suspect]
     Route: 048
  4. NEXIUM [Suspect]
     Indication: GASTROOESOPHAGEAL REFLUX DISEASE
     Route: 048
     Dates: start: 2008, end: 201007

REACTIONS (7)
  - Dyspepsia [Unknown]
  - Aspiration [Unknown]
  - Sleep disorder due to a general medical condition [Unknown]
  - Gastrooesophageal reflux disease [Unknown]
  - Vomiting [Unknown]
  - Drug dose omission [Unknown]
  - Intentional drug misuse [Unknown]
